FAERS Safety Report 8722717 (Version 2)
Quarter: 2012Q4

REPORT INFORMATION
  Report Type: 
  Country: JP (occurrence: JP)
  Receive Date: 20120814
  Receipt Date: 20121121
  Transmission Date: 20130627
  Serious: Yes (Hospitalization, Other)
  Sender: FDA-Public Use
  Company Number: JP-009507513-2012SP026219

PATIENT
  Age: 64 Year
  Sex: Female
  Weight: 42 kg

DRUGS (15)
  1. PEGINTRON [Suspect]
     Indication: CHRONIC HEPATITIS C
     Dosage: 1.5microgram per kilogram, qw
     Route: 058
     Dates: start: 20120309, end: 20120427
  2. REBETOL [Suspect]
     Indication: CHRONIC HEPATITIS C
     Dosage: 400 mg, QD
     Route: 048
     Dates: start: 20120309, end: 20120323
  3. REBETOL [Suspect]
     Dosage: 200 mg, QD
     Route: 048
     Dates: start: 20120324, end: 20120501
  4. TELAVIC [Suspect]
     Indication: CHRONIC HEPATITIS C
     Dosage: 2250 mg, Once
     Route: 048
     Dates: start: 20120309, end: 20120408
  5. TELAVIC [Suspect]
     Dosage: 1500 mg, qd
     Route: 048
     Dates: start: 20120409, end: 20120427
  6. TELAVIC [Suspect]
     Dosage: 1000 mg, qd
     Route: 048
     Dates: start: 20120428, end: 20120501
  7. ALESION [Concomitant]
     Indication: PROPHYLAXIS
     Dosage: 20 mg, Once
     Route: 048
     Dates: start: 20120309, end: 20120510
  8. HERBS (UNSPECIFIED) [Concomitant]
     Indication: PROPHYLAXIS
     Dosage: FORMULATION: POR
     Route: 048
     Dates: start: 20120309
  9. MYSER (CYCLOSERINE) [Concomitant]
     Indication: PRODUCT USED FOR UNKNOWN INDICATION
     Dosage: UPDATE(22JUN2012)
     Route: 061
     Dates: start: 20120317, end: 20120510
  10. CELESTAMIN [Concomitant]
     Indication: PRURIGO
     Dosage: 3 DF, BID
     Route: 048
     Dates: start: 20120319, end: 20120321
  11. CELESTAMIN [Concomitant]
     Dosage: 2 DF, tid
     Dates: start: 20120322, end: 20120419
  12. CELESTAMIN [Concomitant]
     Dosage: 1 DF, qd
     Route: 048
     Dates: start: 20120420, end: 20120502
  13. ZYLORIC [Concomitant]
     Indication: HYPERURICAEMIA
     Dosage: UPDATE(22JUN2012)
     Route: 048
     Dates: start: 20120413, end: 20120510
  14. PRIMPERAN [Concomitant]
     Indication: PRODUCT USED FOR UNKNOWN INDICATION
     Dosage: UPDATE(22JUN2012)
     Route: 048
     Dates: end: 20120502
  15. RIKKUNSHI-TO [Concomitant]
     Indication: PROPHYLAXIS
     Route: 048
     Dates: start: 20120309

REACTIONS (3)
  - Anaemia [Recovered/Resolved]
  - Nausea [Recovered/Resolved]
  - Haemoglobin decreased [Not Recovered/Not Resolved]
